FAERS Safety Report 15598602 (Version 1)
Quarter: 2018Q4

REPORT INFORMATION
  Report Type: Report from Study
  Country: FR (occurrence: FR)
  Receive Date: 20181108
  Receipt Date: 20181108
  Transmission Date: 20190205
  Serious: Yes (Other)
  Sender: FDA-Public Use
  Company Number: FR-HTU-2018FR017784

PATIENT
  Age: 79 Year
  Sex: Female

DRUGS (2)
  1. VALCHLOR [Suspect]
     Active Substance: MECHLORETHAMINE
     Indication: MYCOSIS FUNGOIDES STAGE IV
     Dosage: UNK, 3/WEEK
     Route: 061
     Dates: start: 20171016
  2. VALCHLOR [Suspect]
     Active Substance: MECHLORETHAMINE
     Indication: MYCOSIS FUNGOIDES STAGE III
     Dosage: UNK, 1/WEEK
     Route: 061

REACTIONS (2)
  - Mycosis fungoides stage IV [Unknown]
  - Disease progression [Unknown]
